FAERS Safety Report 5285678-5 (Version None)
Quarter: 2007Q1

REPORT INFORMATION
  Report Type: 
  Country: None (occurrence: None)
  Receive Date: 20070126
  Receipt Date: 20061025
  Transmission Date: 20070707
  Serious: Yes (Other)
  Sender: FDA-Public Use
  Company Number: CLOF-10357

PATIENT
  Age: 23 Year
  Sex: Female

DRUGS (3)
  1. CLOLAR [Suspect]
     Indication: ACUTE MYELOID LEUKAEMIA
     Dosage: 60 MG
     Dates: start: 20061023, end: 20061027
  2. ZOFRAN [Concomitant]
  3. ATIVAN [Concomitant]

REACTIONS (1)
  - HEADACHE [None]
